FAERS Safety Report 10017362 (Version 2)
Quarter: 2014Q2

REPORT INFORMATION
  Report Type: Spontaneous
  Country: DE (occurrence: DE)
  Receive Date: 20140318
  Receipt Date: 20140422
  Transmission Date: 20141212
  Serious: Yes (Other)
  Sender: FDA-Public Use
  Company Number: DE-JNJFOC-20140309053

PATIENT
  Age: 87 Year
  Sex: Female
  Weight: 55 kg

DRUGS (8)
  1. PALEXIA RETARD [Suspect]
     Indication: PRODUCT USED FOR UNKNOWN INDICATION
     Route: 048
     Dates: start: 20131211, end: 20140305
  2. PANTOPRAZOL [Concomitant]
     Indication: PRODUCT USED FOR UNKNOWN INDICATION
     Route: 048
  3. THYRONAJOD [Concomitant]
     Indication: PRODUCT USED FOR UNKNOWN INDICATION
     Route: 048
  4. XARELTO [Concomitant]
     Indication: PRODUCT USED FOR UNKNOWN INDICATION
     Route: 048
  5. FURORESE [Concomitant]
     Indication: PRODUCT USED FOR UNKNOWN INDICATION
     Route: 048
  6. SPIRONOLACTON [Concomitant]
     Indication: PRODUCT USED FOR UNKNOWN INDICATION
     Route: 048
  7. VOLTAREN RESINAT [Concomitant]
     Indication: ANALGESIC THERAPY
     Route: 065
  8. NOVAMINSULFON [Concomitant]
     Indication: ANALGESIC THERAPY
     Route: 065

REACTIONS (1)
  - Diarrhoea haemorrhagic [Recovered/Resolved]
